FAERS Safety Report 10541935 (Version 1)
Quarter: 2014Q4

REPORT INFORMATION
  Report Type: Spontaneous
  Country: GB (occurrence: GB)
  Receive Date: 20141024
  Receipt Date: 20141024
  Transmission Date: 20150529
  Serious: Yes (Other)
  Sender: FDA-Public Use
  Company Number: GB-PFIZER INC-2014290082

PATIENT
  Age: 83 Year
  Sex: Female

DRUGS (1)
  1. CLINDAMYCIN HCL [Suspect]
     Active Substance: CLINDAMYCIN HYDROCHLORIDE
     Dosage: UNK
     Dates: start: 20141006, end: 20141010

REACTIONS (1)
  - Mouth ulceration [Recovering/Resolving]

NARRATIVE: CASE EVENT DATE: 20141006
